FAERS Safety Report 10243744 (Version 1)
Quarter: 2014Q2

REPORT INFORMATION
  Report Type: Spontaneous
  Country: US (occurrence: US)
  Receive Date: 20140618
  Receipt Date: 20140618
  Transmission Date: 20141212
  Serious: No
  Sender: FDA-Public Use
  Company Number: US-BAYER-2014-091300

PATIENT
  Sex: Female

DRUGS (2)
  1. YAZ [Suspect]
     Indication: CONTRACEPTION
     Dosage: UNK
     Dates: start: 201405
  2. YAZ [Suspect]
     Indication: CONTRACEPTION

REACTIONS (2)
  - Menstruation delayed [None]
  - Inappropriate schedule of drug administration [None]
